FAERS Safety Report 7535435-1 (Version None)
Quarter: 2011Q2

REPORT INFORMATION
  Report Type: 
  Country: None (occurrence: None)
  Receive Date: 20110609
  Receipt Date: 20080708
  Transmission Date: 20111010
  Serious: Yes (Death, Other)
  Sender: FDA-Public Use
  Company Number: PHHY2008JP08861

PATIENT
  Sex: Male
  Weight: 61 kg

DRUGS (1)
  1. DIOVAN [Suspect]
     Indication: HYPERTENSION
     Dosage: 40 MG, QD
     Route: 048
     Dates: start: 20061104, end: 20070306

REACTIONS (5)
  - DYSPNOEA [None]
  - EATING DISORDER [None]
  - RESPIRATORY FAILURE [None]
  - HYPOAESTHESIA [None]
  - HYPERCAPNIA [None]
